FAERS Safety Report 13027264 (Version 2)
Quarter: 2016Q4

REPORT INFORMATION
  Report Type: Spontaneous
  Country: US (occurrence: US)
  Receive Date: 20161214
  Receipt Date: 20161223
  Transmission Date: 20170207
  Serious: No
  Sender: FDA-Public Use
  Company Number: US-PFIZER INC-2016558911

PATIENT
  Age: 44 Year
  Sex: Female
  Weight: 52.15 kg

DRUGS (17)
  1. CLARITIN [Concomitant]
     Active Substance: LORATADINE
     Dosage: 10 MG, DAILY
     Route: 048
     Dates: start: 20150526
  2. ATENOLOL. [Concomitant]
     Active Substance: ATENOLOL
     Dosage: 12.5 MG, DAILY (TAKE 1/2 TABLET DAILY BY PRESCRIPTIONS/REFILLS)
     Route: 048
     Dates: start: 20160504
  3. FUROSEMIDE. [Concomitant]
     Active Substance: FUROSEMIDE
     Dosage: 20 MG, DAILY (TAKE ONE PILL BY MOUTH IN AM)
     Route: 048
     Dates: start: 20161011
  4. CLOBETASOL PROPIONATE. [Concomitant]
     Active Substance: CLOBETASOL PROPIONATE
     Dosage: 2X/DAY (FOR UP TO TWO WEEKS)
     Route: 061
     Dates: start: 20161020
  5. VECTICAL [Concomitant]
     Active Substance: CALCITRIOL
     Dosage: 3 G, 2X/DAY (APPLY TO AFFECTED AREA)
     Route: 061
     Dates: start: 20161020
  6. TASIGNA [Suspect]
     Active Substance: NILOTINIB
     Dosage: 2 PILL EVERY 12 HOURS, ADMINISTER ON AN EMPTY STOMACH, AT LEAST 1 HOUR BEFORE OR 2 HOURS AFTER FOOD
     Dates: start: 20150504
  7. PROCHLORPERAZINE MALEATE. [Concomitant]
     Active Substance: PROCHLORPERAZINE MALEATE
     Indication: NAUSEA
     Dosage: 10 MG, AS NEEDED (EVERY 6 HOURS)
     Route: 048
     Dates: start: 20150511
  8. PROMETHAZINE HCL [Concomitant]
     Active Substance: PROMETHAZINE HYDROCHLORIDE
     Indication: NAUSEA
     Dosage: 25 MG, AS NEEDED (ONE TABLET EVERY 6 HOURS)
     Dates: start: 20150511
  9. COMPAZINE [Concomitant]
     Active Substance: PROCHLORPERAZINE MALEATE
     Dosage: TAKE ON AND OFF, TAKE IT EVERY DAY
  10. ALPRAZOLAM. [Concomitant]
     Active Substance: ALPRAZOLAM
     Dosage: 0.5 MG, AS NEEDED (HALF TAB)
     Dates: start: 20150318
  11. FLUOCINONIDE. [Concomitant]
     Active Substance: FLUOCINONIDE
     Dosage: USE AS DIRECTED
     Dates: start: 20150525
  12. GLEEVEC [Suspect]
     Active Substance: IMATINIB MESYLATE
     Dosage: 400 MG, DAILY
     Route: 048
     Dates: start: 20160927
  13. XANAX [Concomitant]
     Active Substance: ALPRAZOLAM
     Dosage: 0.025 SOMETHING AS NEEDED, THE SMALLEST DOSE
  14. SYNTHROID [Concomitant]
     Active Substance: LEVOTHYROXINE SODIUM
     Dosage: 37.5 UG, DAILY (TAKE 1/2 TABLET)
     Route: 048
     Dates: start: 20160504
  15. BOSULIF [Suspect]
     Active Substance: BOSUTINIB MONOHYDRATE
     Indication: CHRONIC MYELOID LEUKAEMIA
     Dosage: 300 MG, DAILY (TAKE 3 TABS BY MOUTH WITH FOOD) IN THE EVENING
     Route: 048
     Dates: start: 20161114
  16. ERGOCALCIFEROL. [Concomitant]
     Active Substance: ERGOCALCIFEROL
     Dosage: 50000 IU, AS NEEDED
     Dates: start: 20150504
  17. SYNTHROID [Concomitant]
     Active Substance: LEVOTHYROXINE SODIUM
     Dosage: 1/2 TABLET ^0.37 SOMETHING^ DAILY
     Route: 048
     Dates: start: 20160504

REACTIONS (6)
  - Diarrhoea [Not Recovered/Not Resolved]
  - Abdominal pain upper [Not Recovered/Not Resolved]
  - Retching [Not Recovered/Not Resolved]
  - Feeling abnormal [Not Recovered/Not Resolved]
  - Nausea [Not Recovered/Not Resolved]
  - Pyrexia [Not Recovered/Not Resolved]
